FAERS Safety Report 12335317 (Version 1)
Quarter: 2016Q2

REPORT INFORMATION
  Report Type: Spontaneous
  Country: TW (occurrence: TW)
  Receive Date: 20160504
  Receipt Date: 20160504
  Transmission Date: 20160815
  Serious: Yes (Death, Life-Threatening, Other)
  Sender: FDA-Public Use
  Company Number: TW-ASTRAZENECA-2016SE46468

PATIENT
  Age: 49 Year
  Sex: Male
  Weight: 62.5 kg

DRUGS (2)
  1. TAGRISSO [Suspect]
     Active Substance: OSIMERTINIB
     Indication: PRODUCT USED FOR UNKNOWN INDICATION
     Route: 048
     Dates: start: 20160326, end: 20160406
  2. IRESSA [Concomitant]
     Active Substance: GEFITINIB
     Route: 048
     Dates: start: 20160302, end: 20160325

REACTIONS (3)
  - Interstitial lung disease [Fatal]
  - Respiratory failure [Fatal]
  - Pneumonia staphylococcal [Fatal]

NARRATIVE: CASE EVENT DATE: 20160406
